FAERS Safety Report 6297424-7 (Version None)
Quarter: 2009Q3

REPORT INFORMATION
  Report Type: 
  Country: None (occurrence: None)
  Receive Date: 20090805
  Receipt Date: 20090709
  Transmission Date: 20100115
  Serious: No
  Sender: FDA-Public Use
  Company Number: US-BAYER-200831674NA

PATIENT

DRUGS (2)
  1. ULTRAVIST (PHARMACY BULK) [Suspect]
     Indication: DRUG USE FOR UNKNOWN INDICATION
     Dates: start: 20080806, end: 20080806
  2. ULTRAVIST (PHARMACY BULK) [Suspect]
     Dates: start: 20080807, end: 20080807

REACTIONS (1)
  - CONTRAST MEDIA REACTION [None]
